FAERS Safety Report 4435271-9 (Version None)
Quarter: 2004Q3

REPORT INFORMATION
  Report Type: 
  Country: None (occurrence: None)
  Receive Date: 20040826
  Receipt Date: 20040802
  Transmission Date: 20050211
  Serious: Yes (Death)
  Sender: FDA-Public Use
  Company Number: 04P-167-0269105-01

PATIENT
  Age: 49 Year
  Sex: Female

DRUGS (6)
  1. HUMIRA [Suspect]
     Indication: RHEUMATOID ARTHRITIS
     Dosage: 40 MG, 1 IN 2 WK, SUBCUTANEOUS : 1 IN 2 WK
     Route: 058
     Dates: start: 20040312
  2. HUMIRA [Suspect]
     Indication: RHEUMATOID ARTHRITIS
     Dosage: 40 MG, 1 IN 2 WK, SUBCUTANEOUS : 1 IN 2 WK
     Route: 058
     Dates: start: 20040312
  3. LEVOTHYROXINE SODIUM [Concomitant]
  4. ARTHROTEC [Concomitant]
  5. PREDNISOLONE [Concomitant]
  6. HUMIRA [Concomitant]

REACTIONS (1)
  - DEATH [None]
